FAERS Safety Report 6673536-0 (Version None)
Quarter: 2010Q2

REPORT INFORMATION
  Report Type: 
  Country: None (occurrence: None)
  Receive Date: 20100408
  Receipt Date: 20100330
  Transmission Date: 20101027
  Serious: No
  Sender: FDA-Public Use
  Company Number: US-B.I. PHARMACEUTICALS,INC./RIDGEFIELD-2010-BP-03703BP

PATIENT
  Age: 48 Year
  Sex: Female

DRUGS (5)
  1. ZANTAC [Suspect]
     Indication: DYSPEPSIA
     Dosage: 150 MG
     Route: 048
  2. MAALOX [Suspect]
     Indication: DYSPEPSIA
     Dates: start: 20100328, end: 20100328
  3. PEPCID [Concomitant]
     Indication: DYSPEPSIA
     Dates: start: 20100329
  4. TYLENOL-500 [Concomitant]
  5. VALIUM [Concomitant]

REACTIONS (1)
  - FAECES DISCOLOURED [None]
